FAERS Safety Report 13000925 (Version 1)
Quarter: 2016Q4

REPORT INFORMATION
  Report Type: Spontaneous
  Country: US (occurrence: US)
  Receive Date: 20161206
  Receipt Date: 20161206
  Transmission Date: 20170207
  Serious: Yes (Congenital Anomaly)
  Sender: FDA-Public Use
  Company Number: US-CIPLA LTD.-2016US22540

PATIENT

DRUGS (4)
  1. ZIDOVUDINE. [Suspect]
     Active Substance: ZIDOVUDINE
     Dosage: UNK, 1ST, 2ND AND 3RD TRIMESTER
     Route: 064
  2. LAMIVUDINE. [Suspect]
     Active Substance: LAMIVUDINE
     Dosage: UNK, 1ST, 2ND AND 3RD TRIMESTER
     Route: 064
  3. NELFINAVIR [Suspect]
     Active Substance: NELFINAVIR
     Dosage: UNK, 1ST AND 2ND TRIMESTER
     Route: 064
  4. NEVIRAPINE. [Suspect]
     Active Substance: NEVIRAPINE
     Dosage: UNK, 3RD TRIMESTER
     Route: 064

REACTIONS (5)
  - Ventricular septal defect [Unknown]
  - Tracheo-oesophageal fistula [Unknown]
  - Oesophageal atresia [Unknown]
  - Foetal exposure during pregnancy [Unknown]
  - Patent ductus arteriosus [Unknown]
